FAERS Safety Report 4715430-8 (Version None)
Quarter: 2005Q3

REPORT INFORMATION
  Report Type: 
  Country: None (occurrence: None)
  Receive Date: 20050715
  Receipt Date: 20050715
  Transmission Date: 20060218
  Serious: Yes (Other)
  Sender: FDA-Public Use
  Company Number: None

PATIENT
  Age: 61 Year
  Sex: Male
  Weight: 93.441 kg

DRUGS (1)
  1. GEODON [Suspect]
     Indication: AGITATION
     Dosage: 10 MG IM X 1 , REPEART Q 1 HR FOR EXTREME AGITATION TO MAX DOSE 40 MG /24 HR
     Route: 030
     Dates: start: 20050619

REACTIONS (8)
  - ERYTHEMA [None]
  - INCORRECT ROUTE OF DRUG ADMINISTRATION [None]
  - INFUSION SITE ERYTHEMA [None]
  - LETHARGY [None]
  - OEDEMA PERIPHERAL [None]
  - OXYGEN SATURATION DECREASED [None]
  - PAIN [None]
  - SINUS TACHYCARDIA [None]
